FAERS Safety Report 7058708-8 (Version None)
Quarter: 2010Q4

REPORT INFORMATION
  Report Type: 
  Country: None (occurrence: None)
  Receive Date: 20101022
  Receipt Date: 20100315
  Transmission Date: 20110411
  Serious: Yes (Other)
  Sender: FDA-Public Use
  Company Number: DE-NOVOPROD-288356

PATIENT
  Sex: Male
  Weight: 1.19 kg

DRUGS (3)
  1. INSULIN DETEMIR FLEXPEN [Suspect]
     Indication: INSULIN-REQUIRING TYPE 2 DIABETES MELLITUS
     Dosage: 10 U, QD
     Route: 064
     Dates: start: 20080411, end: 20080708
  2. ACTRAPID [Suspect]
     Indication: INSULIN-REQUIRING TYPE 2 DIABETES MELLITUS
     Dosage: UNK, QD
     Route: 064
     Dates: start: 20080911
  3. PROTAPHANE [Suspect]
     Indication: INSULIN-REQUIRING TYPE 2 DIABETES MELLITUS
     Dosage: UNK, QD
     Route: 064
     Dates: start: 20080911

REACTIONS (4)
  - DRUG EXPOSURE DURING PREGNANCY [None]
  - INTENSIVE CARE [None]
  - PREMATURE BABY [None]
  - UMBILICAL CORD VASCULAR DISORDER [None]
